FAERS Safety Report 7063351-0 (Version None)
Quarter: 2010Q4

REPORT INFORMATION
  Report Type: 
  Country: None (occurrence: None)
  Receive Date: 20101026
  Receipt Date: 20101021
  Transmission Date: 20110411
  Serious: Yes (Death, Hospitalization)
  Sender: FDA-Public Use
  Company Number: SE-MERCK-1010SWE00020

PATIENT
  Sex: Male

DRUGS (9)
  1. JANUVIA [Suspect]
     Route: 048
     Dates: start: 20071120
  2. METFORMIN [Concomitant]
     Route: 048
     Dates: start: 20030101, end: 20070124
  3. METFORMIN [Concomitant]
     Route: 048
     Dates: start: 20070125, end: 20070312
  4. METFORMIN [Concomitant]
     Route: 048
     Dates: start: 20070313, end: 20070625
  5. METFORMIN [Concomitant]
     Route: 048
     Dates: start: 20070626, end: 20080220
  6. METFORMIN [Concomitant]
     Route: 048
     Dates: start: 20080221, end: 20080813
  7. METFORMIN [Concomitant]
     Route: 048
     Dates: start: 20080814
  8. GLYBURIDE [Concomitant]
     Route: 048
     Dates: start: 20070626, end: 20071120
  9. GLYBURIDE [Concomitant]
     Route: 048
     Dates: start: 20080814

REACTIONS (6)
  - ADVERSE EVENT [None]
  - ANXIETY [None]
  - DIZZINESS [None]
  - HYPOTENSION [None]
  - ORGAN FAILURE [None]
  - WEIGHT DECREASED [None]
